FAERS Safety Report 6777982-6 (Version None)
Quarter: 2010Q2

REPORT INFORMATION
  Report Type: 
  Country: None (occurrence: None)
  Receive Date: 20100618
  Receipt Date: 20100608
  Transmission Date: 20101027
  Serious: No
  Sender: FDA-Public Use
  Company Number: US-BIOGENIDEC-2010BI018222

PATIENT
  Sex: Male

DRUGS (1)
  1. TYSABRI [Suspect]
     Indication: MULTIPLE SCLEROSIS
     Route: 042
     Dates: start: 20090901

REACTIONS (6)
  - INFECTION [None]
  - MYALGIA [None]
  - NEPHROLITHIASIS [None]
  - NIGHT SWEATS [None]
  - PYREXIA [None]
  - SPINAL DISORDER [None]
